FAERS Safety Report 24168264 (Version 1)
Quarter: 2024Q3

REPORT INFORMATION
  Report Type: Spontaneous
  Country: US (occurrence: US)
  Receive Date: 20240802
  Receipt Date: 20240802
  Transmission Date: 20241017
  Serious: Yes (Death, Hospitalization, Other)
  Sender: DR REDDYS
  Company Number: US-DRL-USA-LIT/USA/24/0011046

PATIENT
  Age: 44 Year
  Sex: Female

DRUGS (3)
  1. CYCLOPHOSPHAMIDE [Suspect]
     Active Substance: CYCLOPHOSPHAMIDE
     Indication: Interstitial lung disease
  2. MYCOPHENOLIC ACID [Suspect]
     Active Substance: MYCOPHENOLIC ACID
     Indication: Interstitial lung disease
  3. RITUXIMAB [Suspect]
     Active Substance: RITUXIMAB
     Indication: Interstitial lung disease

REACTIONS (9)
  - Respiratory failure [Fatal]
  - Hypercapnia [Fatal]
  - Interstitial lung disease [Fatal]
  - Diffuse alveolar damage [Fatal]
  - Condition aggravated [Unknown]
  - Pneumomediastinum [Unknown]
  - Pneumothorax [Unknown]
  - Drug ineffective for unapproved indication [Unknown]
  - Bronchiectasis [Unknown]
